FAERS Safety Report 9564678 (Version 2)
Quarter: 2013Q4

REPORT INFORMATION
  Report Type: Spontaneous
  Country: US (occurrence: US)
  Receive Date: 20130930
  Receipt Date: 20131004
  Transmission Date: 20140711
  Serious: No
  Sender: FDA-Public Use
  Company Number: US-PFIZER INC-2013278938

PATIENT
  Sex: Male

DRUGS (2)
  1. CELEBREX [Suspect]
     Indication: ARTHRITIS
     Dosage: UNK
     Route: 048
     Dates: end: 201309
  2. CELEBREX [Suspect]
     Indication: ARTHRALGIA

REACTIONS (8)
  - Gait disturbance [Recovering/Resolving]
  - Dizziness [Recovered/Resolved]
  - Motion sickness [Recovering/Resolving]
  - Coordination abnormal [Recovering/Resolving]
  - Fall [Recovering/Resolving]
  - Balance disorder [Recovering/Resolving]
  - Asthenia [Unknown]
  - Malaise [Recovering/Resolving]
